FAERS Safety Report 5045364-3 (Version None)
Quarter: 2006Q3

REPORT INFORMATION
  Report Type: 
  Country: None (occurrence: None)
  Receive Date: 20060707
  Receipt Date: 20060411
  Transmission Date: 20061208
  Serious: No
  Sender: FDA-Public Use
  Company Number: US-GLAXOSMITHKLINE-A0601363A

PATIENT
  Age: 51 Year
  Sex: Female

DRUGS (4)
  1. LOTRONEX [Suspect]
     Indication: IRRITABLE BOWEL SYNDROME
     Dosage: 1MG TWICE PER DAY
     Route: 048
     Dates: start: 20060329
  2. MENEST [Concomitant]
  3. PROGESTERONE [Concomitant]
  4. ELAVIL [Concomitant]

REACTIONS (1)
  - IRRITABILITY [None]
